FAERS Safety Report 12852811 (Version 2)
Quarter: 2016Q4

REPORT INFORMATION
  Report Type: Spontaneous
  Country: BR (occurrence: BR)
  Receive Date: 20161017
  Receipt Date: 20161110
  Transmission Date: 20170207
  Serious: Yes (Other)
  Sender: FDA-Public Use
  Company Number: BR-SUN PHARMACEUTICAL INDUSTRIES LTD-2016RR-125937

PATIENT
  Age: 57 Year
  Sex: Male

DRUGS (1)
  1. OXALIPLATIN. [Suspect]
     Active Substance: OXALIPLATIN
     Indication: PRODUCT USED FOR UNKNOWN INDICATION
     Dosage: 300 MG/M2, UNK
     Route: 033
     Dates: start: 20150817

REACTIONS (1)
  - Noninfective epididymitis [Recovering/Resolving]

NARRATIVE: CASE EVENT DATE: 2015
